FAERS Safety Report 9693892 (Version 1)
Quarter: 2013Q4

REPORT INFORMATION
  Report Type: Spontaneous
  Country: US (occurrence: US)
  Receive Date: 20131118
  Receipt Date: 20131118
  Transmission Date: 20140711
  Serious: Yes (Hospitalization, Other)
  Sender: FDA-Public Use
  Company Number: US-PFIZER INC-2013327903

PATIENT
  Age: 44 Year
  Sex: Female
  Weight: 72.58 kg

DRUGS (2)
  1. MOTRIN IB [Suspect]
     Indication: PYREXIA
     Dosage: AS DIRECTED, TWO CAPLETS FOR THE FIRST DOSE AND ONE FOR EACH ADDITIONAL DOSE NOT EXCEEDING SIX IN 24
     Route: 048
  2. MOTRIN IB [Suspect]
     Indication: PAIN
     Dosage: UNK
     Route: 048

REACTIONS (5)
  - Increased tendency to bruise [Recovering/Resolving]
  - Pain [Recovering/Resolving]
  - Thrombosis [Recovering/Resolving]
  - Convulsion [Recovered/Resolved]
  - Blister [Recovering/Resolving]
